FAERS Safety Report 14065806 (Version 1)
Quarter: 2017Q4

REPORT INFORMATION
  Report Type: Spontaneous
  Country: FR (occurrence: FR)
  Receive Date: 20171009
  Receipt Date: 20171009
  Transmission Date: 20180321
  Serious: Yes (Hospitalization)
  Sender: FDA-Public Use
  Company Number: PHHY2017FR146329

PATIENT
  Age: 46 Year
  Sex: Female

DRUGS (1)
  1. PREDNISOLONE SANDOZ [Suspect]
     Active Substance: PREDNISOLONE
     Indication: ARTHROPOD BITE
     Route: 048
     Dates: start: 20170622

REACTIONS (3)
  - Pharyngeal oedema [Recovered/Resolved with Sequelae]
  - Allergic reaction to excipient [Recovered/Resolved with Sequelae]
  - Throat irritation [Recovered/Resolved with Sequelae]

NARRATIVE: CASE EVENT DATE: 20170622
